FAERS Safety Report 15947448 (Version 1)
Quarter: 2019Q1

REPORT INFORMATION
  Report Type: Spontaneous
  Country: NZ (occurrence: NZ)
  Receive Date: 20190212
  Receipt Date: 20190212
  Transmission Date: 20190417
  Serious: Yes (Hospitalization)
  Sender: FDA-Public Use
  Company Number: NZ-BAXTER-2019BAX002846

PATIENT
  Age: 62 Year
  Sex: Female

DRUGS (13)
  1. GLUCOSE INJECTION, 70%, SOLUTION FOR INFUSION [Suspect]
     Active Substance: DEXTROSE
     Indication: PARENTERAL NUTRITION
     Route: 042
  2. SODIUM ACETATE. [Suspect]
     Active Substance: SODIUM ACETATE
     Indication: PARENTERAL NUTRITION
     Dosage: 2MMOL/ML (BAXTER OFF-LICENSE PRODUCT)
     Route: 042
  3. SYNTHAMIN [Suspect]
     Active Substance: AMINO ACIDS
     Indication: PARENTERAL NUTRITION
     Route: 042
  4. CLINOLEIC, EMULSION FOR INFUSION [Suspect]
     Active Substance: OLIVE OIL\SOYBEAN OIL
     Indication: PARENTERAL NUTRITION
     Route: 042
  5. POTASSIUM CHLORIDE. [Suspect]
     Active Substance: POTASSIUM CHLORIDE
     Indication: PARENTERAL NUTRITION
     Dosage: 3 MMOL/ML (BAXTER OFF-LICENSE PRODUCT)
     Route: 042
  6. MAGNESIUM SULFATE. [Suspect]
     Active Substance: MAGNESIUM SULFATE
     Indication: PARENTERAL NUTRITION
     Dosage: 2MMOL/ML (BAXTER OFF-LICENSE PRODUCT)
     Route: 042
  7. POTASSIUM DI-H PHOSPHATE [Suspect]
     Active Substance: POTASSIUM PHOSPHATE, MONOBASIC
     Indication: PARENTERAL NUTRITION
     Dosage: 1MMOL/ML (BAXTER OFF-LICENSE PRODUCT)
     Route: 042
  8. WATER FOR INJECTION [Suspect]
     Active Substance: WATER
     Indication: PARENTERAL NUTRITION
     Dosage: (BAXTER OFF-LICENSE PRODUCT)
     Route: 042
  9. SODIUM CHLORIDE. [Suspect]
     Active Substance: SODIUM CHLORIDE
     Indication: PARENTERAL NUTRITION
     Dosage: 4MMOL/ML (BAXTER OFF-LICENSE PRODUCT)
     Route: 042
  10. WATER FOR INJECTION [Suspect]
     Active Substance: WATER
     Indication: PARENTERAL NUTRITION
     Route: 042
  11. CERNEVIT [Suspect]
     Active Substance: VITAMINS
     Indication: PARENTERAL NUTRITION
     Route: 042
  12. ADULT TRACE ELEMENTS [Suspect]
     Active Substance: MINERALS
     Indication: PARENTERAL NUTRITION
     Dosage: (BAXTER OFF-LICENSE PRODUCT)
     Route: 042
  13. CALCIUM GLUCONATE. [Suspect]
     Active Substance: CALCIUM GLUCONATE
     Indication: PARENTERAL NUTRITION
     Dosage: (BAXTER OFF-LICENSE PRODUCT)
     Route: 042

REACTIONS (1)
  - Device related infection [Unknown]

NARRATIVE: CASE EVENT DATE: 20190109
